FAERS Safety Report 24739950 (Version 1)
Quarter: 2024Q4

REPORT INFORMATION
  Report Type: Spontaneous
  Country: FR (occurrence: FR)
  Receive Date: 20241216
  Receipt Date: 20241216
  Transmission Date: 20250114
  Serious: Yes (Death, Other)
  Sender: REGENERON
  Company Number: FR-REGENERON PHARMACEUTICALS, INC.-2024-152148

PATIENT
  Age: 77 Year
  Sex: Female

DRUGS (1)
  1. LIBTAYO [Suspect]
     Active Substance: CEMIPLIMAB-RWLC
     Indication: Squamous cell carcinoma of the cervix
     Dosage: UNK

REACTIONS (4)
  - Death [Fatal]
  - Pulmonary embolism [Unknown]
  - Immune thrombocytopenia [Unknown]
  - Cardiac disorder [Unknown]
